FAERS Safety Report 11515981 (Version 3)
Quarter: 2015Q4

REPORT INFORMATION
  Report Type: Spontaneous
  Country: US (occurrence: US)
  Receive Date: 20150916
  Receipt Date: 20151102
  Transmission Date: 20160304
  Serious: Yes (Hospitalization)
  Sender: FDA-Public Use
  Company Number: US-HOSPIRA-3006077

PATIENT
  Age: 17 Year
  Sex: Female
  Weight: 62.1 kg

DRUGS (5)
  1. DEXAMETHASONE. [Suspect]
     Active Substance: DEXAMETHASONE
     Indication: ANAPLASTIC LARGE CELL LYMPHOMA T- AND NULL-CELL TYPES
     Dosage: ON DAYS 1-21; TOTAL DOSE: 80 MG
     Route: 048
     Dates: start: 20150707, end: 20150711
  2. CRIZOTINIB [Suspect]
     Active Substance: CRIZOTINIB
     Indication: ANAPLASTIC LARGE CELL LYMPHOMA T- AND NULL-CELL TYPES
     Dosage: ON DAYS 1-21; TOTAL DOSE: 5400 MG
     Route: 048
     Dates: start: 20150707, end: 20150718
  3. METHOTREXATE [Suspect]
     Active Substance: METHOTREXATE
     Indication: ANAPLASTIC LARGE CELL LYMPHOMA T- AND NULL-CELL TYPES
     Dosage: OVER 3 HOURS ON DAY 1; TOTAL DOSE: 4800 MG
     Route: 042
     Dates: start: 20150707, end: 20150707
  4. DOXORUBICIN HYDROCHLORIDE. [Suspect]
     Active Substance: DOXORUBICIN HYDROCHLORIDE
     Indication: ANAPLASTIC LARGE CELL LYMPHOMA T- AND NULL-CELL TYPES
     Dosage: OVER 1-15 MINUTES ON DAYS 4 AND 5; TOTAL DOSE: 80 MG
     Route: 042
     Dates: start: 20150707, end: 20150711
  5. CYCLOPHOSPHAMIDE. [Suspect]
     Active Substance: CYCLOPHOSPHAMIDE
     Indication: ANAPLASTIC LARGE CELL LYMPHOMA T- AND NULL-CELL TYPES
     Dosage: OVER 15-30 MINUTES ON DAYS 1-5; TOTAL DOSE: 1600 MG
     Route: 042
     Dates: start: 20150707, end: 20150711

REACTIONS (7)
  - Fatigue [Unknown]
  - Constipation [Unknown]
  - Febrile neutropenia [Unknown]
  - Stomatitis [Recovered/Resolved]
  - Dizziness [Unknown]
  - Cough [Unknown]
  - Stomatitis [Unknown]

NARRATIVE: CASE EVENT DATE: 20150718
